FAERS Safety Report 10839711 (Version 1)
Quarter: 2015Q1

REPORT INFORMATION
  Report Type: Spontaneous
  Country: TR (occurrence: None)
  Receive Date: 20150218
  Receipt Date: 20150218
  Transmission Date: 20150721
  Serious: Yes (Other)
  Sender: FDA-Public Use
  Company Number: INT_00694_2015

PATIENT
  Age: 59 Year
  Sex: Female

DRUGS (4)
  1. DEXAMETHASONE. [Concomitant]
     Active Substance: DEXAMETHASONE
  2. RANITIDINE [Concomitant]
     Active Substance: RANITIDINE\RANITIDINE HYDROCHLORIDE
  3. PACLITAXEL. [Suspect]
     Active Substance: PACLITAXEL
     Indication: METASTASES TO LUNG
     Dosage: 1 HR UNTIL NOT CONTINUING; (120 MG TOTAL DOSE), (80 MG/M**2 (120 MG TOTAL DOSE)
  4. GRANISETRON [Concomitant]
     Active Substance: GRANISETRON

REACTIONS (1)
  - Encephalopathy [None]
